FAERS Safety Report 17501572 (Version 12)
Quarter: 2020Q4

REPORT INFORMATION
  Report Type: Spontaneous
  Country: US (occurrence: US)
  Receive Date: 20200305
  Receipt Date: 20201016
  Transmission Date: 20210113
  Serious: Yes (Hospitalization, Other)
  Sender: FDA-Public Use
  Company Number: US-PFIZER INC-2020096331

PATIENT
  Age: 85 Year
  Sex: Male
  Weight: 68.93 kg

DRUGS (13)
  1. CARVEDILOL. [Concomitant]
     Active Substance: CARVEDILOL
     Indication: CARDIAC DISORDER
     Dosage: 6.25 MG, 2X/DAY
  2. TUDCA [Concomitant]
     Active Substance: DIETARY SUPPLEMENT\TAUROURSODEOXYCHOLIC ACID
     Indication: SUPPLEMENTATION THERAPY
     Dosage: UNK
     Dates: start: 201902
  3. VYNDAQEL [Suspect]
     Active Substance: TAFAMIDIS MEGLUMINE
     Indication: CARDIAC AMYLOIDOSIS
     Dosage: UNK
     Route: 048
     Dates: start: 20191009
  4. VYNDAQEL [Suspect]
     Active Substance: TAFAMIDIS MEGLUMINE
     Dosage: 4 DF, DAILY
     Route: 048
     Dates: start: 202003
  5. VYNDAQEL [Suspect]
     Active Substance: TAFAMIDIS MEGLUMINE
     Indication: AMYLOIDOSIS SENILE
     Dosage: 80 MG, DAILY (FOUR 20 MG CAPSULES DAILY)
     Route: 048
     Dates: start: 201910
  6. BUMEX [Concomitant]
     Active Substance: BUMETANIDE
     Indication: POLYURIA
     Dosage: 1 MG, 1X/DAY
     Dates: start: 201902
  7. VYNDAQEL [Suspect]
     Active Substance: TAFAMIDIS MEGLUMINE
     Indication: AMYLOIDOSIS
     Dosage: 80 MG, DAILY (4 IN AFTERNOON OR AT NIGHT/TWO AT ONE TIME, TWO AND TWO, OR FOUR AT ONE TIME)
     Route: 048
     Dates: start: 20191025
  8. TUDCA [Concomitant]
     Active Substance: DIETARY SUPPLEMENT\TAUROURSODEOXYCHOLIC ACID
     Dosage: UNK, 3X/DAY
  9. ELIQUIS [Concomitant]
     Active Substance: APIXABAN
     Indication: ANTICOAGULANT THERAPY
     Dosage: UNK
  10. ATORVASTATIN [Concomitant]
     Active Substance: ATORVASTATIN
     Dosage: UNK
  11. XARELTO [Concomitant]
     Active Substance: RIVAROXABAN
     Dosage: UNK
  12. VYNDAQEL [Suspect]
     Active Substance: TAFAMIDIS MEGLUMINE
     Dosage: 4 DF, 1X/DAY
     Route: 048
     Dates: start: 201912
  13. COREG [Concomitant]
     Active Substance: CARVEDILOL
     Dosage: UNK
     Dates: start: 201902

REACTIONS (22)
  - Dizziness postural [Unknown]
  - Deformity [Unknown]
  - Platelet count decreased [Unknown]
  - Condition aggravated [Unknown]
  - Platelet disorder [Not Recovered/Not Resolved]
  - Anaemia [Not Recovered/Not Resolved]
  - Gout [Not Recovered/Not Resolved]
  - Joint swelling [Not Recovered/Not Resolved]
  - Disorientation [Unknown]
  - Pancreatic disorder [Unknown]
  - Back pain [Unknown]
  - Peripheral swelling [Not Recovered/Not Resolved]
  - Arthralgia [Not Recovered/Not Resolved]
  - Musculoskeletal chest pain [Unknown]
  - Back disorder [Not Recovered/Not Resolved]
  - Renal impairment [Recovered/Resolved]
  - Cholelithiasis [Not Recovered/Not Resolved]
  - Disease recurrence [Unknown]
  - Pain in extremity [Not Recovered/Not Resolved]
  - Dyspnoea [Not Recovered/Not Resolved]
  - Biliary colic [Unknown]
  - Stenosis [Not Recovered/Not Resolved]

NARRATIVE: CASE EVENT DATE: 201911
